FAERS Safety Report 8101790-7 (Version None)
Quarter: 2012Q1

REPORT INFORMATION
  Report Type: 
  Country: None (occurrence: None)
  Receive Date: 20120131
  Receipt Date: 20120125
  Transmission Date: 20120608
  Serious: Yes (Hospitalization)
  Sender: FDA-Public Use
  Company Number: PHHY2012CH006534

PATIENT
  Age: 69 Year
  Sex: Female

DRUGS (13)
  1. ZOLOFT [Suspect]
     Dosage: UNK UKN, UNK
  2. MOVIPREP [Concomitant]
     Dosage: 1 DF, UNK
     Route: 048
  3. TEGRETOL [Suspect]
     Dosage: 300 MG, DAILY
     Dates: start: 20110520
  4. NEURONTIN [Concomitant]
     Dosage: 300 MG, TID
     Route: 048
     Dates: start: 20110501
  5. ENTUMINE [Concomitant]
     Dosage: 20 MG, UNK
     Route: 048
  6. TEGRETOL [Suspect]
     Dosage: 100 MG, DAILY
     Dates: start: 20110527, end: 20110603
  7. ATORVASTATIN CALCIUM [Concomitant]
     Dosage: 20 MG, UNK
     Route: 048
  8. TEGRETOL [Suspect]
     Dosage: 200 MG, DAILY
     Dates: start: 20110525
  9. VALPROATE SODIUM [Suspect]
     Dosage: UNK UKN, UNK
  10. DIOVAN [Concomitant]
     Dosage: 80 MG, BID
     Route: 048
  11. ASPIRIN [Concomitant]
     Dosage: 250 MG, UNK
     Route: 048
  12. TEGRETOL [Suspect]
     Dosage: 200 MG, BID
     Dates: start: 20110504, end: 20110603
  13. TRAZODONE HCL [Concomitant]
     Dosage: 50 MG, UNK
     Route: 048

REACTIONS (7)
  - HYPERAMMONAEMIA [None]
  - LETHARGY [None]
  - HYPONATRAEMIA [None]
  - ASTHENIA [None]
  - TACHYCARDIA [None]
  - CONFUSIONAL STATE [None]
  - BLOOD PRESSURE INCREASED [None]
